FAERS Safety Report 5110884-X (Version None)
Quarter: 2006Q3

REPORT INFORMATION
  Report Type: 
  Country: None (occurrence: None)
  Receive Date: 20060919
  Receipt Date: 20060912
  Transmission Date: 20061208
  Serious: Yes (Hospitalization, Other)
  Sender: FDA-Public Use
  Company Number: ST-2006-009259

PATIENT
  Sex: Female

DRUGS (3)
  1. OLMESARTAN MEDOXOMIL [Suspect]
     Indication: HYPERTENSION
     Dosage: 20 MG QD PO
     Route: 048
     Dates: start: 20060801, end: 20060909
  2. DIART [Suspect]
     Indication: HYPERTENSION
     Dosage: 60 MG QD PO
     Route: 048
     Dates: start: 20060701, end: 20060909
  3. SELBEX [Suspect]
     Indication: HYPERTENSION
     Dosage: 50 MG TID PO
     Route: 048
     Dates: start: 20060801, end: 20060909

REACTIONS (3)
  - BACTERIAL INFECTION [None]
  - STEVENS-JOHNSON SYNDROME [None]
  - VIRAL INFECTION [None]
